FAERS Safety Report 18323581 (Version 2)
Quarter: 2020Q3

REPORT INFORMATION
  Report Type: Spontaneous
  Country: DE (occurrence: DE)
  Receive Date: 20200928
  Receipt Date: 20200929
  Transmission Date: 20201103
  Serious: Yes (Life-Threatening)
  Sender: FDA-Public Use
  Company Number: DE-JNJFOC-20200931739

PATIENT
  Age: 28 Year
  Sex: Male

DRUGS (2)
  1. XARELTO [Suspect]
     Active Substance: RIVAROXABAN
     Indication: DEEP VEIN THROMBOSIS
     Dosage: 15 MG, BID
     Route: 048
     Dates: start: 20200915
  2. OMEPRAZOLE. [Concomitant]
     Active Substance: OMEPRAZOLE
     Dosage: UNK
     Dates: start: 2014

REACTIONS (10)
  - Nausea [Unknown]
  - Abdominal pain [Unknown]
  - Paraesthesia [Unknown]
  - Apparent life threatening event [Unknown]
  - Paraesthesia [Unknown]
  - Hypoaesthesia [Unknown]
  - Eyelid ptosis [Unknown]
  - Dyspepsia [Unknown]
  - Somnolence [Unknown]
  - Muscle tightness [Unknown]

NARRATIVE: CASE EVENT DATE: 20200915
